FAERS Safety Report 8127939-8 (Version None)
Quarter: 2012Q1

REPORT INFORMATION
  Report Type: 
  Country: None (occurrence: None)
  Receive Date: 20120210
  Receipt Date: 20120206
  Transmission Date: 20120608
  Serious: Yes (Other)
  Sender: FDA-Public Use
  Company Number: US-BAYER-2012-012565

PATIENT
  Age: 81 Year
  Sex: Female

DRUGS (4)
  1. CLOPIDOGREL [Suspect]
     Dosage: UNK UNK, UNK
     Route: 065
     Dates: start: 20110101
  2. PREDNISONE TAB [Concomitant]
     Dosage: UNK
  3. SIMVASTATIN [Concomitant]
     Dosage: UNK
  4. ASPIRIN [Suspect]
     Dosage: UNK UNK, UNK
     Route: 065
     Dates: start: 20110101, end: 20110701

REACTIONS (3)
  - HAEMORRHAGE [None]
  - CONTUSION [None]
  - JOINT INJURY [None]
